FAERS Safety Report 6901386-6 (Version None)
Quarter: 2010Q3

REPORT INFORMATION
  Report Type: 
  Country: None (occurrence: None)
  Receive Date: 20100803
  Receipt Date: 20080329
  Transmission Date: 20110219
  Serious: No
  Sender: FDA-Public Use
  Company Number: US-PFIZER INC-2008008640

PATIENT
  Sex: Male
  Weight: 87.272 kg

DRUGS (5)
  1. LYRICA [Suspect]
     Indication: BURNING SENSATION
     Route: 048
     Dates: start: 20071201
  2. LYRICA [Suspect]
     Indication: PRURITUS
  3. LYRICA [Suspect]
     Indication: PARAESTHESIA
  4. MEVACOR [Concomitant]
     Route: 048
     Dates: start: 19970101
  5. LOPRESSOR [Concomitant]
     Route: 048
     Dates: start: 19970101

REACTIONS (1)
  - WEIGHT INCREASED [None]
